FAERS Safety Report 6508783-1 (Version None)
Quarter: 2009Q4

REPORT INFORMATION
  Report Type: 
  Country: None (occurrence: None)
  Receive Date: 20091221
  Receipt Date: 20091214
  Transmission Date: 20100525
  Serious: Yes (Other)
  Sender: FDA-Public Use
  Company Number: VE-ELI_LILLY_AND_COMPANY-VE200910007468

PATIENT
  Age: 87 Year
  Sex: Female

DRUGS (7)
  1. FORTEO [Suspect]
     Indication: OSTEOPOROSIS
     Dosage: 20 UG, DAILY (1/D)
     Route: 058
     Dates: start: 20091021, end: 20091101
  2. FORTEO [Suspect]
     Dosage: 20 UG, DAILY (1/D)
     Route: 058
     Dates: start: 20090101
  3. AMIODARONE HCL [Concomitant]
  4. PLAVIX [Concomitant]
  5. SIMVASTATIN [Concomitant]
  6. LANSOPRAZOL [Concomitant]
  7. VUSCOBRAS [Concomitant]

REACTIONS (4)
  - DIARRHOEA HAEMORRHAGIC [None]
  - HYPOTENSION [None]
  - LOSS OF CONSCIOUSNESS [None]
  - VOMITING [None]
